FAERS Safety Report 18595263 (Version 2)
Quarter: 2021Q1

REPORT INFORMATION
  Report Type: Report from Study
  Country: CA (occurrence: CA)
  Receive Date: 20201209
  Receipt Date: 20210316
  Transmission Date: 20210419
  Serious: Yes (Hospitalization)
  Sender: FDA-Public Use
  Company Number: CA-ROCHE-2654079

PATIENT
  Age: 58 Year
  Sex: Male

DRUGS (45)
  1. CALCIUM CHLORIDE. [Concomitant]
     Active Substance: CALCIUM CHLORIDE
     Dates: start: 20200816
  2. ZOFRAN [Concomitant]
     Active Substance: ONDANSETRON HYDROCHLORIDE
     Dates: start: 20200903, end: 20200905
  3. ETOPOSIDE. [Concomitant]
     Active Substance: ETOPOSIDE
     Dates: start: 20200903, end: 20200905
  4. STEMETIL [Concomitant]
     Active Substance: PROCHLORPERAZINE
     Dates: start: 20200905
  5. MESNA. [Concomitant]
     Active Substance: MESNA
     Dates: start: 20200904, end: 20200905
  6. RITUXIMAB. [Suspect]
     Active Substance: RITUXIMAB
     Route: 041
     Dates: start: 20200903
  7. GEMCITABINE. [Suspect]
     Active Substance: GEMCITABINE
     Dosage: 1 WEEK 1 DAY
     Route: 042
     Dates: start: 20200629, end: 20200706
  8. DEXAMETHASONE. [Suspect]
     Active Substance: DEXAMETHASONE
     Indication: HAEMATOLOGICAL MALIGNANCY
     Dosage: D1?D4
     Route: 048
     Dates: start: 20200604, end: 20200702
  9. CISPLATIN. [Suspect]
     Active Substance: CISPLATIN
     Indication: HAEMATOLOGICAL MALIGNANCY
     Route: 042
     Dates: start: 20200604, end: 20200604
  10. MAGNESIUM SULFATE. [Concomitant]
     Active Substance: MAGNESIUM SULFATE
     Dates: start: 20200816, end: 20200817
  11. CARBOPLATINE [Concomitant]
     Active Substance: CARBOPLATIN
     Dates: start: 20200904
  12. MAGNESIUM SULFATE. [Concomitant]
     Active Substance: MAGNESIUM SULFATE
     Dates: start: 20200913
  13. POTASSIUM [Concomitant]
     Active Substance: POTASSIUM
     Dates: start: 20200911, end: 20200912
  14. ENOXAPARINE SODIQUE [Concomitant]
     Active Substance: ENOXAPARIN SODIUM
     Dates: start: 20200828, end: 20200910
  15. ACETAMINOPHEN. [Concomitant]
     Active Substance: ACETAMINOPHEN
     Dates: start: 20200903
  16. POTASSIUM CHLORIDE. [Concomitant]
     Active Substance: POTASSIUM CHLORIDE
     Dates: start: 20200912, end: 20200922
  17. MEROPENEM. [Concomitant]
     Active Substance: MEROPENEM
     Dates: start: 20200914, end: 20200919
  18. RITUXIMAB. [Suspect]
     Active Substance: RITUXIMAB
     Route: 041
     Dates: start: 20200604, end: 20200629
  19. GEMCITABINE. [Suspect]
     Active Substance: GEMCITABINE
     Indication: HAEMATOLOGICAL MALIGNANCY
     Route: 042
     Dates: start: 20200604, end: 20200611
  20. DEXAMETHASONE. [Suspect]
     Active Substance: DEXAMETHASONE
     Route: 065
     Dates: start: 20200903, end: 20200905
  21. FLUDROCORTISONE [Concomitant]
     Active Substance: FLUDROCORTISONE
     Dates: start: 20200901
  22. DEXLANSOPRAZOLE [Concomitant]
     Active Substance: DEXLANSOPRAZOLE
     Dates: start: 20200903, end: 20201223
  23. BENADRYL [Concomitant]
     Active Substance: DIPHENHYDRAMINE HYDROCHLORIDE
     Dates: start: 20200903, end: 20200905
  24. CEFPROZIL. [Concomitant]
     Active Substance: CEFPROZIL
     Dates: start: 20200919, end: 20200924
  25. POTASSIUM [Concomitant]
     Active Substance: POTASSIUM
     Dates: start: 20200815, end: 20200816
  26. LASIX [Concomitant]
     Active Substance: FUROSEMIDE
     Dates: start: 20200904, end: 20200905
  27. MAGNESIUM OXIDE. [Concomitant]
     Active Substance: MAGNESIUM OXIDE
     Dates: start: 20200914, end: 20210219
  28. RITUXIMAB. [Suspect]
     Active Substance: RITUXIMAB
     Indication: HAEMATOLOGICAL MALIGNANCY
     Route: 041
     Dates: start: 20200604, end: 20200604
  29. CISPLATIN. [Suspect]
     Active Substance: CISPLATIN
     Route: 042
     Dates: start: 20200629, end: 20200629
  30. POTASSIUM [Concomitant]
     Active Substance: POTASSIUM
     Dates: start: 20200915, end: 20200921
  31. NORMAL SALINE [Concomitant]
     Active Substance: SODIUM CHLORIDE
     Dates: start: 20200827
  32. CALCIUM [Concomitant]
     Active Substance: CALCIUM
     Dates: start: 20200816, end: 20200906
  33. SODIUM BICARBONATE. [Concomitant]
     Active Substance: SODIUM BICARBONATE
     Dates: start: 20200911
  34. SODIUM PHOSPHATE [Concomitant]
     Active Substance: SODIUM PHOSPHATE
     Dates: start: 20200919
  35. VITAMIN B1 [Concomitant]
     Active Substance: THIAMINE HYDROCHLORIDE
     Dates: start: 20200814, end: 20200816
  36. POTASSIUM PHOSPHATE [Concomitant]
     Active Substance: POTASSIUM PHOSPHATE
     Dates: start: 20200816
  37. ZYPREXA [Concomitant]
     Active Substance: OLANZAPINE
     Dates: start: 20200903, end: 20200907
  38. NORMAL SALINE [Concomitant]
     Active Substance: SODIUM CHLORIDE
     Dates: start: 20200815, end: 20200817
  39. BENEPROTEIN [Concomitant]
     Active Substance: DIETARY SUPPLEMENT
     Dates: start: 20200815, end: 20200925
  40. LORAZEPAM. [Concomitant]
     Active Substance: LORAZEPAM
     Dates: start: 20200823, end: 20200924
  41. EFFEXOR [Concomitant]
     Active Substance: VENLAFAXINE HYDROCHLORIDE
     Dates: start: 20200902
  42. IFOSFAMIDE. [Concomitant]
     Active Substance: IFOSFAMIDE
     Dates: start: 20200904
  43. MAXERAN [Concomitant]
     Active Substance: METOCLOPRAMIDE HYDROCHLORIDE
     Dates: start: 20200906, end: 20200915
  44. SODIUM PHOSPHATE [Concomitant]
     Active Substance: SODIUM PHOSPHATE
     Dates: start: 20200913
  45. MAGNESIUM OXIDE. [Concomitant]
     Active Substance: MAGNESIUM OXIDE
     Dates: start: 20200814, end: 20200906

REACTIONS (3)
  - Febrile neutropenia [Not Recovered/Not Resolved]
  - Febrile neutropenia [Unknown]
  - Decreased appetite [Not Recovered/Not Resolved]

NARRATIVE: CASE EVENT DATE: 20200619
